FAERS Safety Report 10305478 (Version 1)
Quarter: 2014Q3

REPORT INFORMATION
  Report Type: Spontaneous
  Country: US (occurrence: None)
  Receive Date: 20140710
  Receipt Date: 20140710
  Transmission Date: 20150326
  Serious: Yes (Hospitalization)
  Sender: FDA-Public Use
  Company Number: QSC-2014-0391

PATIENT
  Age: 71 Year
  Sex: Male

DRUGS (16)
  1. ACETAMINOPHEN PM (DIPHENHYDRAMINE HYDROCHLORIDE PARACETAMOL) [Concomitant]
  2. CALCIUM 600 + D (CALCIUM CARBONATE, COLECALCIFEROL) [Concomitant]
  3. FISH OIL (FISH OIL) [Concomitant]
     Active Substance: FISH OIL
  4. DOXAZOSIN [Concomitant]
     Active Substance: DOXAZOSIN\DOXAZOSIN MESYLATE
  5. TRAMADOL (TRAMADOL) [Concomitant]
     Active Substance: TRAMADOL
  6. VERAPAMIL [Concomitant]
     Active Substance: VERAPAMIL HYDROCHLORIDE
  7. VITAMIN C [Concomitant]
     Active Substance: ASCORBIC ACID
  8. ASPIRIN LOW (ACETYLSALICYLIC ACID) [Concomitant]
  9. VITAMIN D3 [Concomitant]
     Active Substance: CHOLECALCIFEROL
  10. ALLOPURINOL (ALLOPURINOL) [Concomitant]
     Active Substance: ALLOPURINOL
  11. LASIX [Concomitant]
     Active Substance: FUROSEMIDE
  12. PREDNISONE (PREDNISONE) [Suspect]
     Active Substance: PREDNISONE
     Indication: FOCAL SEGMENTAL GLOMERULOSCLEROSIS
     Route: 048
     Dates: start: 20140326, end: 2014
  13. MAGNESIUM OXIDE (MAGNESIUM OXIDE) [Concomitant]
     Active Substance: MAGNESIUM OXIDE
  14. H.P. ACTHAR [Suspect]
     Active Substance: CORTICOTROPIN
     Indication: FOCAL SEGMENTAL GLOMERULOSCLEROSIS
     Route: 058
     Dates: start: 20140603, end: 20140606
  15. LISINOPRIL (LISINOPRIL) [Concomitant]
     Active Substance: LISINOPRIL
  16. OMEPRAZOLE (OMEPRAZOLE) [Concomitant]
     Active Substance: OMEPRAZOLE

REACTIONS (5)
  - Intervertebral disc protrusion [None]
  - Insomnia [None]
  - Back pain [None]
  - Spinal osteoarthritis [None]
  - Guillain-Barre syndrome [None]

NARRATIVE: CASE EVENT DATE: 20140604
